FAERS Safety Report 5101904-7 (Version None)
Quarter: 2006Q3

REPORT INFORMATION
  Report Type: 
  Country: None (occurrence: None)
  Receive Date: 20060907
  Receipt Date: 20060823
  Transmission Date: 20061208
  Serious: Yes (Hospitalization)
  Sender: FDA-Public Use
  Company Number: 008402

PATIENT
  Age: 43 Year
  Sex: Female
  Weight: 108.8 kg

DRUGS (7)
  1. METHYLPREDNISOLONE [Suspect]
     Indication: BRONCHITIS
     Dosage: AS DIRECTED, ORAL
     Route: 048
     Dates: start: 20050422, end: 20050427
  2. ALBUTEROL [Concomitant]
  3. KETEK [Concomitant]
  4. IPRATROPIUM BROMIDE [Concomitant]
  5. OLMESARTAN MEDOXOMIL (OLMESARTAN MEDOXOMIL) [Concomitant]
  6. VYTORIN [Concomitant]
  7. EFFEXOR [Concomitant]

REACTIONS (7)
  - ARTHRALGIA [None]
  - BACK PAIN [None]
  - GAIT DISTURBANCE [None]
  - OSTEONECROSIS [None]
  - PAIN [None]
  - PHARMACEUTICAL PRODUCT COMPLAINT [None]
  - POOR PERIPHERAL CIRCULATION [None]
